FAERS Safety Report 4990840-2 (Version None)
Quarter: 2006Q1

REPORT INFORMATION
  Report Type: 
  Country: None (occurrence: None)
  Receive Date: 20060314
  Receipt Date: 20060210
  Transmission Date: 20060701
  Serious: No
  Sender: FDA-Public Use
  Company Number: 2006-00299

PATIENT
  Age: 63 Year
  Sex: Female
  Weight: 49.9 kg

DRUGS (4)
  1. VELCADE [Suspect]
     Indication: MULTIPLE MYELOMA
     Dosage: INTRAVENOUS
     Route: 042
     Dates: start: 20040701, end: 20050101
  2. VELCADE [Suspect]
     Indication: MULTIPLE MYELOMA
     Dosage: INTRAVENOUS
     Route: 042
     Dates: start: 20060130, end: 20060209
  3. ... [Concomitant]
  4. KYTRIL [Concomitant]

REACTIONS (2)
  - NAUSEA [None]
  - SKIN DISCOLOURATION [None]
